FAERS Safety Report 4994179-0 (Version None)
Quarter: 2006Q2

REPORT INFORMATION
  Report Type: 
  Country: None (occurrence: None)
  Receive Date: 20060503
  Receipt Date: 20060420
  Transmission Date: 20061013
  Serious: Yes (Other)
  Sender: FDA-Public Use
  Company Number: 29082

PATIENT
  Age: 82 Year
  Sex: Male

DRUGS (4)
  1. FLECAINIDE ACETATE [Suspect]
     Indication: ARRHYTHMIA
     Dosage: 100 MG (50 MG, 2 IN 1 DAY(S))
     Route: 048
     Dates: start: 20010101
  2. IRBESARTAN [Suspect]
     Indication: HYPERTENSION
     Dosage: 150 MG (150 MG, 1 IN 1 DAY(S))
     Route: 048
     Dates: start: 20010101
  3. PRAZOSIN HCL [Suspect]
     Indication: HYPERTENSION
     Dosage: 1 DOSAGE FORMS (1 DOSAGE FORMS, 1 IN 1 DAY(S))
     Route: 048
     Dates: start: 20010101
  4. CORGARD [Suspect]
     Indication: HYPERTENSION
     Dosage: 40 MG (40 MG, 1 IN 1 DAY(S))
     Route: 048
     Dates: start: 20010101

REACTIONS (2)
  - HYPOCHROMIC ANAEMIA [None]
  - IRON DEFICIENCY [None]
